FAERS Safety Report 8690918 (Version 2)
Quarter: 2013Q4

REPORT INFORMATION
  Report Type: Spontaneous
  Country: US (occurrence: US)
  Receive Date: 20120730
  Receipt Date: 20131101
  Transmission Date: 20140711
  Serious: No
  Sender: FDA-Public Use
  Company Number: US-009507513-1207USA006202

PATIENT
  Sex: Female
  Weight: 54.42 kg

DRUGS (3)
  1. PEPCID [Suspect]
     Indication: GASTRITIS
     Dosage: 40 MG, BID
     Route: 048
     Dates: start: 201204
  2. VITAMINS (UNSPECIFIED) [Concomitant]
  3. CALCIUM (UNSPECIFIED) [Concomitant]
     Dosage: UNK

REACTIONS (2)
  - Flatulence [Not Recovered/Not Resolved]
  - Abdominal distension [Not Recovered/Not Resolved]
